FAERS Safety Report 5545282-8 (Version None)
Quarter: 2007Q4

REPORT INFORMATION
  Report Type: 
  Country: None (occurrence: None)
  Receive Date: 20071211
  Receipt Date: 20071204
  Transmission Date: 20080405
  Serious: Yes (Other)
  Sender: FDA-Public Use
  Company Number: PHBS2007IT20496

PATIENT
  Age: 84 Year
  Sex: Female

DRUGS (1)
  1. SALAGEN [Suspect]
     Indication: SJOGREN'S SYNDROME
     Dosage: 15 MG/DAY
     Route: 048
     Dates: start: 20050201, end: 20071114

REACTIONS (1)
  - ATRIAL FIBRILLATION [None]
